FAERS Safety Report 4689994-7 (Version None)
Quarter: 2005Q2

REPORT INFORMATION
  Report Type: 
  Country: None (occurrence: None)
  Receive Date: 20050513
  Receipt Date: 20040806
  Transmission Date: 20051028
  Serious: Yes (Hospitalization)
  Sender: FDA-Public Use
  Company Number: 376918

PATIENT
  Age: 54 Year
  Sex: Female

DRUGS (1)
  1. VALCYTE [Suspect]
     Indication: ANTIVIRAL PROPHYLAXIS
     Dosage: 450 MG 1 PER ONCE DOSE ORAL
     Route: 048
     Dates: start: 20040710

REACTIONS (1)
  - TRANSPLANT REJECTION [None]
